FAERS Safety Report 13734897 (Version 1)
Quarter: 2017Q3

REPORT INFORMATION
  Report Type: Spontaneous
  Country: US (occurrence: US)
  Receive Date: 20170710
  Receipt Date: 20170710
  Transmission Date: 20171127
  Serious: Yes (Hospitalization, Other)
  Sender: FDA-Public Use
  Company Number: US-ACCORD-053285

PATIENT
  Age: 38 Year
  Sex: Female

DRUGS (10)
  1. BELIMUMAB [Suspect]
     Active Substance: BELIMUMAB
     Indication: SYSTEMIC LUPUS ERYTHEMATOSUS
  2. PIPERACILLIN SODIUM/TAZOBACTAM SODIUM [Concomitant]
  3. AMOXICILLIN TRIHYDRATE/CLAVULANATE POTASSIUM [Concomitant]
  4. VANCOMYCIN [Concomitant]
     Active Substance: VANCOMYCIN
  5. DAPTOMYCIN. [Concomitant]
     Active Substance: DAPTOMYCIN
  6. MYCOPHENOLIC ACID. [Suspect]
     Active Substance: MYCOPHENOLIC ACID
     Indication: SYSTEMIC LUPUS ERYTHEMATOSUS
  7. PREDNISONE. [Suspect]
     Active Substance: PREDNISONE
     Indication: SYSTEMIC LUPUS ERYTHEMATOSUS
  8. TOBRAMYCIN. [Concomitant]
     Active Substance: TOBRAMYCIN
  9. AZITHROMYCIN ANHYDROUS. [Concomitant]
     Active Substance: AZITHROMYCIN ANHYDROUS
  10. DOXYCYCLINE. [Concomitant]
     Active Substance: DOXYCYCLINE

REACTIONS (3)
  - Off label use [Unknown]
  - Arthritis bacterial [Unknown]
  - Mycobacterium avium complex infection [Unknown]
